FAERS Safety Report 8089349-1 (Version None)
Quarter: 2012Q1

REPORT INFORMATION
  Report Type: 
  Country: None (occurrence: None)
  Receive Date: 20120128
  Receipt Date: 20110629
  Transmission Date: 20120608
  Serious: No
  Sender: FDA-Public Use
  Company Number: US-ABBOTT-11P-163-0835701-00

PATIENT
  Sex: Female

DRUGS (2)
  1. MERCAPTOPURINE [Concomitant]
     Indication: CROHN'S DISEASE
  2. HUMIRA [Suspect]
     Indication: CROHN'S DISEASE
     Dates: start: 20100821, end: 20110101

REACTIONS (6)
  - PYREXIA [None]
  - MALAISE [None]
  - CROHN'S DISEASE [None]
  - DRUG DOSE OMISSION [None]
  - HAEMATOCHEZIA [None]
  - ABDOMINAL PAIN [None]
